FAERS Safety Report 4382171-9 (Version None)
Quarter: 2004Q2

REPORT INFORMATION
  Report Type: 
  Country: None (occurrence: None)
  Receive Date: 20040615
  Receipt Date: 20040602
  Transmission Date: 20050107
  Serious: Yes (Other)
  Sender: FDA-Public Use
  Company Number: 2004036927

PATIENT
  Age: 64 Year
  Sex: Female
  Weight: 69.4 kg

DRUGS (2)
  1. PROCARDIA [Suspect]
     Indication: ILL-DEFINED DISORDER
     Dates: end: 20020411
  2. BOSENTAN [Suspect]
     Indication: PULMONARY HYPERTENSION
     Dosage: 125 MG (62.5 MG, 2 IN 1 D), ORAL
     Route: 048
     Dates: start: 20020306, end: 20020411

REACTIONS (4)
  - ANAEMIA [None]
  - DYSPNOEA EXACERBATED [None]
  - FATIGUE [None]
  - OEDEMA PERIPHERAL [None]
